FAERS Safety Report 8018444-8 (Version None)
Quarter: 2012Q1

REPORT INFORMATION
  Report Type: 
  Country: None (occurrence: None)
  Receive Date: 20120103
  Receipt Date: 20111226
  Transmission Date: 20120608
  Serious: Yes (Hospitalization)
  Sender: FDA-Public Use
  Company Number: JP-ASTELLAS-2011JP009665

PATIENT
  Sex: Male

DRUGS (4)
  1. RINDERON-VG [Concomitant]
     Dosage: UNK
     Route: 065
     Dates: end: 20111130
  2. PROTOPIC [Suspect]
     Indication: FOETAL EXPOSURE DURING PREGNANCY
     Dosage: UNK
     Route: 064
     Dates: end: 20110511
  3. KINDAVATE [Concomitant]
     Dosage: UNK
     Route: 065
     Dates: end: 20111130
  4. CLINDAMYCIN PHOSPHATE [Concomitant]
     Dosage: UNK
     Route: 065
     Dates: end: 20111130

REACTIONS (1)
  - PREMATURE BABY [None]
